FAERS Safety Report 23232179 (Version 1)
Quarter: 2023Q4

REPORT INFORMATION
  Report Type: Spontaneous
  Country: US (occurrence: US)
  Receive Date: 20231127
  Receipt Date: 20231127
  Transmission Date: 20240109
  Serious: Yes (Other)
  Sender: FDA-Public Use
  Company Number: US-HORIZON THERAPEUTICS-HZN-2023-009876

PATIENT

DRUGS (2)
  1. PREDNISONE [Suspect]
     Active Substance: PREDNISONE
     Indication: Glomerulonephritis minimal lesion
     Dosage: 5 MG, QD
     Route: 048
     Dates: start: 2019, end: 202107
  2. PREDNISONE [Suspect]
     Active Substance: PREDNISONE
     Dosage: 10 MG, QD
     Route: 048
     Dates: start: 202107, end: 202204

REACTIONS (4)
  - Glomerulonephritis minimal lesion [Unknown]
  - Urine abnormality [Unknown]
  - Peripheral swelling [Unknown]
  - Weight increased [Unknown]
